FAERS Safety Report 5030011-7 (Version None)
Quarter: 2006Q2

REPORT INFORMATION
  Report Type: 
  Country: None (occurrence: None)
  Receive Date: 20060614
  Receipt Date: 20060526
  Transmission Date: 20061013
  Serious: Yes (Hospitalization, Other)
  Sender: FDA-Public Use
  Company Number: US200511001412

PATIENT
  Age: 36 Year
  Sex: Female
  Weight: 104.3 kg

DRUGS (4)
  1. ZYPREXA [Suspect]
  2. PREMARIN [Concomitant]
  3. PREMPRO [Concomitant]
  4. ESTRADIOL [Concomitant]

REACTIONS (7)
  - ANKLE FRACTURE [None]
  - DIABETES MELLITUS INSULIN-DEPENDENT [None]
  - DIABETIC COMA [None]
  - HYPERPHAGIA [None]
  - LOWER LIMB FRACTURE [None]
  - PANCREATITIS CHRONIC [None]
  - VISION BLURRED [None]
